FAERS Safety Report 10049813 (Version 1)
Quarter: 2014Q1

REPORT INFORMATION
  Report Type: Spontaneous
  Country: US (occurrence: None)
  Receive Date: 20140328
  Receipt Date: 20140328
  Transmission Date: 20141002
  Serious: Yes (Other)
  Sender: FDA-Public Use
  Company Number: 2014-001

PATIENT
  Sex: Female

DRUGS (1)
  1. DIUREX ULTRA [Suspect]
     Indication: WEIGHT INCREASED
     Dosage: 1-2 TABLETS, 4X DAILY
     Dates: start: 20140319

REACTIONS (7)
  - Feeling abnormal [None]
  - Dyspnoea [None]
  - Chest discomfort [None]
  - Dizziness [None]
  - Heart rate increased [None]
  - Blood pressure increased [None]
  - Drug ineffective [None]
